FAERS Safety Report 16692837 (Version 2)
Quarter: 2019Q3

REPORT INFORMATION
  Report Type: Spontaneous
  Country: US (occurrence: US)
  Receive Date: 20190812
  Receipt Date: 20190813
  Transmission Date: 20191004
  Serious: No
  Sender: FDA-Public Use
  Company Number: US-PFIZER INC-2019341157

PATIENT
  Sex: Female

DRUGS (2)
  1. ADVIL LIQUI-GELS [Suspect]
     Active Substance: IBUPROFEN
     Indication: PYREXIA
  2. ADVIL LIQUI-GELS [Suspect]
     Active Substance: IBUPROFEN
     Indication: GASTROENTERITIS VIRAL
     Dosage: UNK

REACTIONS (4)
  - Lip swelling [Unknown]
  - Drug hypersensitivity [Unknown]
  - Swelling [Unknown]
  - Influenza [Unknown]
